FAERS Safety Report 7618169-4 (Version None)
Quarter: 2011Q3

REPORT INFORMATION
  Report Type: 
  Country: None (occurrence: None)
  Receive Date: 20110718
  Receipt Date: 20110624
  Transmission Date: 20111222
  Serious: Yes (Other)
  Sender: FDA-Public Use
  Company Number: US-GLAXOSMITHKLINE-A0869617A

PATIENT
  Age: 45 Year
  Sex: Female

DRUGS (1)
  1. AVANDIA [Suspect]
     Indication: DIABETES MELLITUS
     Dosage: 4MG PER DAY
     Route: 048
     Dates: start: 20020101, end: 20020608

REACTIONS (4)
  - CARDIAC FAILURE CONGESTIVE [None]
  - SWELLING [None]
  - BLINDNESS UNILATERAL [None]
  - DEPRESSION [None]
